FAERS Safety Report 13569267 (Version 1)
Quarter: 2017Q2

REPORT INFORMATION
  Report Type: Spontaneous
  Country: US (occurrence: US)
  Receive Date: 20170522
  Receipt Date: 20170522
  Transmission Date: 20170830
  Serious: No
  Sender: FDA-Public Use
  Company Number: US-MYLANLABS-2016M1038189

PATIENT
  Sex: Male
  Weight: 81.63 kg

DRUGS (1)
  1. FEXOFENADINE HCL TABLETS, USP [Suspect]
     Active Substance: FEXOFENADINE HYDROCHLORIDE
     Indication: HYPERSENSITIVITY
     Dosage: 180 MG, QD
     Dates: start: 2005, end: 2016

REACTIONS (3)
  - Drug effect decreased [Unknown]
  - Dyspnoea [Unknown]
  - Unevaluable event [Unknown]
